FAERS Safety Report 10105493 (Version 1)
Quarter: 2014Q2

REPORT INFORMATION
  Report Type: Report from Study
  Country: US (occurrence: US)
  Receive Date: 20140424
  Receipt Date: 20140424
  Transmission Date: 20141212
  Serious: Yes (Other)
  Sender: FDA-Public Use
  Company Number: US-GILEAD-2014-0100526

PATIENT
  Sex: Male

DRUGS (1)
  1. SOFOSBUVIR [Suspect]
     Indication: CHRONIC HEPATITIS C
     Route: 065

REACTIONS (5)
  - Cerebrovascular accident [Unknown]
  - Muscle rigidity [Unknown]
  - Peripheral swelling [Unknown]
  - Skin discolouration [Unknown]
  - Agitation [Unknown]
